FAERS Safety Report 6521465-5 (Version None)
Quarter: 2009Q4

REPORT INFORMATION
  Report Type: 
  Country: None (occurrence: None)
  Receive Date: 20091230
  Receipt Date: 20091222
  Transmission Date: 20100525
  Serious: Yes (Death)
  Sender: FDA-Public Use
  Company Number: JP-ROCHE-676777

PATIENT
  Age: 65 Year
  Sex: Female

DRUGS (2)
  1. ROCEPHIN [Suspect]
     Indication: SEPSIS
     Dosage: DOSE: 2 GRAM/12 HR.
     Route: 042
     Dates: start: 20090501
  2. DEXAMETHASONE SODIUM PHOSPHATE [Concomitant]
     Dosage: DOSE: 0.15 MG/KG/6HR.
     Route: 042
     Dates: start: 20090501

REACTIONS (1)
  - DISEASE PROGRESSION [None]
